FAERS Safety Report 6444815-7 (Version None)
Quarter: 2009Q4

REPORT INFORMATION
  Report Type: 
  Country: None (occurrence: None)
  Receive Date: 20091116
  Receipt Date: 20091116
  Transmission Date: 20100525
  Serious: Yes (Hospitalization)
  Sender: FDA-Public Use
  Company Number: None

PATIENT
  Sex: Female
  Weight: 92.0802 kg

DRUGS (2)
  1. MEGA ASTRA ZENECA 25 MG MFR MYLAN 50 MG [Suspect]
     Indication: HEART RATE INCREASED
     Dosage: 1 TABLET TWICE A DAY
     Dates: start: 20090201, end: 20091001
  2. METOPROLOL TARTRATE MFG MYLAN 50 MG [Suspect]
     Dosage: 1/2 TABLE TWICE DAY

REACTIONS (8)
  - DYSPNOEA [None]
  - HEART RATE DECREASED [None]
  - JOINT SWELLING [None]
  - LOSS OF CONSCIOUSNESS [None]
  - NAIL DISCOLOURATION [None]
  - OEDEMA PERIPHERAL [None]
  - OXYGEN SATURATION DECREASED [None]
  - SYNCOPE [None]
